FAERS Safety Report 22289633 (Version 4)
Quarter: 2024Q4

REPORT INFORMATION
  Report Type: Spontaneous
  Country: US (occurrence: US)
  Receive Date: 20230505
  Receipt Date: 20241122
  Transmission Date: 20250115
  Serious: No
  Sender: PFIZER
  Company Number: US-PFIZER INC-PV202300040613

PATIENT
  Age: 68 Year
  Sex: Female

DRUGS (2)
  1. IBRANCE [Suspect]
     Active Substance: PALBOCICLIB
     Indication: Breast cancer metastatic
     Dosage: 125 MG
  2. IBRANCE [Suspect]
     Active Substance: PALBOCICLIB
     Indication: Agranulocytosis
     Dosage: 75 MG, CYCLIC (TAKE 1 TABLET (75 MG) BY MOUTH ONCE DAILY.TAKE FOR 21 DAYS ON,FOLLOWED BY 7 DAYS OFF)
     Route: 048

REACTIONS (1)
  - Full blood count abnormal [Unknown]
